FAERS Safety Report 8449732-9 (Version None)
Quarter: 2012Q2

REPORT INFORMATION
  Report Type: 
  Country: None (occurrence: None)
  Receive Date: 20120620
  Receipt Date: 20120615
  Transmission Date: 20120825
  Serious: No
  Sender: FDA-Public Use
  Company Number: US-PFIZER INC-2012144822

PATIENT
  Sex: Female

DRUGS (4)
  1. ATENOLOL [Concomitant]
     Indication: BLOOD PRESSURE
     Dosage: 50 MG, 1X/DAY IN THE EVENING
  2. SUTENT [Suspect]
     Indication: PANCREATIC NEUROENDOCRINE TUMOUR
     Dosage: 37.5 MG (25MG + 12.5MG), 1X/DAY
     Dates: start: 20120427
  3. AMLODIPINE [Concomitant]
     Indication: BLOOD PRESSURE
     Dosage: 5 MG, 1X/DAY IN THE EVENING
  4. HYDROCHLOROTHIAZIDE [Concomitant]
     Indication: BLOOD PRESSURE
     Dosage: 25 MG, 1X/DAY IN THE EVENING

REACTIONS (2)
  - BLISTER [None]
  - SKIN PAPILLOMA [None]
